FAERS Safety Report 17251690 (Version 1)
Quarter: 2020Q1

REPORT INFORMATION
  Report Type: Spontaneous
  Country: US (occurrence: US)
  Receive Date: 20200108
  Receipt Date: 20200108
  Transmission Date: 20200409
  Serious: Yes (Death, Life-Threatening, Hospitalization)
  Sender: FDA-Public Use
  Company Number: None

PATIENT
  Age: 63 Year
  Sex: Female

DRUGS (1)
  1. LISINOPRIL HCTZ 20/12.5MG [Suspect]
     Active Substance: HYDROCHLOROTHIAZIDE\LISINOPRIL
     Indication: HYPERTENSION
     Dosage: ?          QUANTITY:2 TABLET(S);?
     Route: 048

REACTIONS (5)
  - Brain death [None]
  - Cardio-respiratory arrest [None]
  - Asphyxia [None]
  - Swollen tongue [None]
  - Seizure [None]

NARRATIVE: CASE EVENT DATE: 20190820
